FAERS Safety Report 9869228 (Version 2)
Quarter: 2014Q1

REPORT INFORMATION
  Report Type: Report from Study
  Country: NL (occurrence: NL)
  Receive Date: 20140205
  Receipt Date: 20140213
  Transmission Date: 20141002
  Serious: Yes (Hospitalization)
  Sender: FDA-Public Use
  Company Number: PHHO2014NL001649

PATIENT
  Sex: 0

DRUGS (11)
  1. AFINITOR [Suspect]
     Indication: METASTATIC RENAL CELL CARCINOMA
     Dosage: 10 MG, QD
     Route: 048
     Dates: start: 20140107, end: 20140128
  2. AFINITOR [Suspect]
     Dosage: 10 MG, QD
     Route: 048
     Dates: start: 20140129
  3. PAZOPANIB [Suspect]
     Indication: METASTATIC RENAL CELL CARCINOMA
     Dosage: 400 MG, BID
     Route: 048
     Dates: start: 20131202, end: 20140108
  4. INSULINE ASPARTATE [Concomitant]
     Dosage: 1XPER DAY 8 UNITS
     Dates: start: 20140129, end: 20140129
  5. METFORMINE [Concomitant]
     Dosage: 500 MG, BID
     Route: 048
     Dates: start: 20140129
  6. GLIMEPIRIDE [Concomitant]
     Dosage: 1 MG, BID
     Route: 048
     Dates: start: 20140129
  7. CLOPIDOGREL [Concomitant]
     Dosage: 75 MG, QD
     Route: 048
     Dates: start: 20140129
  8. CARBASALATE CALCIUM [Concomitant]
     Dosage: 100 MG, QD
     Route: 048
     Dates: start: 20140129
  9. FONDAPARINUX [Concomitant]
     Dosage: 2.5 MG, QD
     Route: 058
     Dates: start: 20140129
  10. METOPROLOL TARTRATE [Concomitant]
     Dosage: 0.5 MG, BID
     Route: 048
     Dates: start: 20140129
  11. VALSARTAN [Concomitant]
     Dosage: 80 MG, QD
     Route: 048
     Dates: start: 20140129

REACTIONS (1)
  - Acute coronary syndrome [Unknown]
